FAERS Safety Report 6830261-0 (Version None)
Quarter: 2010Q3

REPORT INFORMATION
  Report Type: 
  Country: None (occurrence: None)
  Receive Date: 20100712
  Receipt Date: 20100702
  Transmission Date: 20110219
  Serious: Yes (Hospitalization)
  Sender: FDA-Public Use
  Company Number: US-BIOGENIDEC-2010BI020163

PATIENT
  Age: 55 Year
  Sex: Female

DRUGS (2)
  1. TYSABRI [Suspect]
     Indication: MULTIPLE SCLEROSIS
     Route: 042
     Dates: start: 20080213, end: 20080312
  2. TYSABRI [Suspect]
     Route: 042
     Dates: start: 20100128, end: 20100506

REACTIONS (10)
  - CYTOMEGALOVIRUS INFECTION [None]
  - FATIGUE [None]
  - HEPATIC FUNCTION ABNORMAL [None]
  - HYPERTENSION [None]
  - LIVER INJURY [None]
  - MUSCULAR WEAKNESS [None]
  - NAUSEA [None]
  - PANCYTOPENIA [None]
  - THINKING ABNORMAL [None]
  - THROMBOCYTOPENIA [None]
